FAERS Safety Report 6255549-6 (Version None)
Quarter: 2009Q2

REPORT INFORMATION
  Report Type: 
  Country: None (occurrence: None)
  Receive Date: 20090630
  Receipt Date: 20090608
  Transmission Date: 20091009
  Serious: Yes (Hospitalization, Other)
  Sender: FDA-Public Use
  Company Number: WAES 0905USA03536

PATIENT
  Age: 69 Year
  Sex: Male

DRUGS (7)
  1. HYZAAR [Suspect]
     Indication: HYPERTENSION
     Dosage: 1 DOSE/DAILY, PO
     Route: 048
     Dates: start: 20081227, end: 20090307
  2. TAB ER EVIPROSTAT (HORSETAIL (+) MANGANESE [Suspect]
     Dosage: 6 DOSE/DAILY, PO
     Route: 048
  3. AMARYL [Concomitant]
  4. DANTRIUM [Concomitant]
  5. GRANDAXIN [Concomitant]
  6. CYANOCOBALAMIN [Concomitant]
  7. NEUROTROPIN [Concomitant]

REACTIONS (4)
  - BLOOD GLUCOSE INCREASED [None]
  - DIABETIC NEUROPATHY [None]
  - GLYCOSYLATED HAEMOGLOBIN INCREASED [None]
  - HYPOAESTHESIA [None]
